FAERS Safety Report 4899593-X (Version None)
Quarter: 2006Q1

REPORT INFORMATION
  Report Type: 
  Country: None (occurrence: None)
  Receive Date: 20060118
  Receipt Date: 20050803
  Transmission Date: 20060701
  Serious: No
  Sender: FDA-Public Use
  Company Number: 2005001511

PATIENT
  Age: 77 Year
  Sex: Male

DRUGS (7)
  1. TARCEVA [Suspect]
     Indication: NON-SMALL CELL LUNG CANCER
     Dosage: 150 MG (QD), ORAL
     Route: 048
     Dates: start: 20050401
  2. ACIFLUX (ALGITEC) [Concomitant]
  3. DURAGESIC-100 [Concomitant]
  4. ASPIRIN [Concomitant]
  5. DURICEF [Concomitant]
  6. HYDROCODONE BITARTRATE [Concomitant]
  7. HYDROCORTISONE [Concomitant]

REACTIONS (2)
  - ERUCTATION [None]
  - FLATULENCE [None]
